FAERS Safety Report 8758705 (Version 2)
Quarter: 2012Q4

REPORT INFORMATION
  Report Type: 
  Country: US (occurrence: US)
  Receive Date: 20120829
  Receipt Date: 20121004
  Transmission Date: 20130627
  Serious: Yes (Hospitalization, Other)
  Sender: FDA-Public Use
  Company Number: US-NOVOPROD-356425

PATIENT
  Age: 70 Year
  Sex: Male
  Weight: 116.1 kg

DRUGS (2)
  1. VICTOZA [Suspect]
     Indication: DIABETES MELLITUS
     Dosage: 1.2 mg, qd
     Route: 058
     Dates: start: 20110725, end: 20110829
  2. VICTOZA [Suspect]
     Dosage: 1.8 mg, qd
     Route: 058
     Dates: start: 20110829, end: 20120727

REACTIONS (2)
  - Bile duct obstruction [Recovered/Resolved]
  - Pancreatitis acute [Recovered/Resolved]
